FAERS Safety Report 6605066-6 (Version None)
Quarter: 2010Q1

REPORT INFORMATION
  Report Type: 
  Country: None (occurrence: None)
  Receive Date: 20100226
  Receipt Date: 20100216
  Transmission Date: 20100710
  Serious: Yes (Hospitalization, Other)
  Sender: FDA-Public Use
  Company Number: US-ELI_LILLY_AND_COMPANY-US201002004556

PATIENT
  Sex: Male
  Weight: 95.692 kg

DRUGS (5)
  1. BYETTA [Suspect]
     Indication: TYPE 2 DIABETES MELLITUS
     Dosage: 5 UG, DAILY (1/D)
     Route: 058
     Dates: start: 20091001, end: 20090101
  2. BYETTA [Suspect]
     Dosage: 5 UG, 2/D
     Route: 058
     Dates: start: 20090101
  3. METFORMIN HYDROCHLORIDE [Concomitant]
     Dosage: 500 MG, 2/D
     Route: 048
  4. OMEPRAZOLE [Concomitant]
     Indication: ABDOMINAL DISCOMFORT
     Dosage: 20 MG, AS NEEDED
  5. ALCOHOL [Concomitant]
     Dates: start: 20090101, end: 20090101

REACTIONS (9)
  - ALCOHOL ABUSE [None]
  - DYSPNOEA [None]
  - GOUT [None]
  - HYPOPHAGIA [None]
  - LIVER DISORDER [None]
  - PAIN IN EXTREMITY [None]
  - PRURITUS [None]
  - RENAL FAILURE [None]
  - WEIGHT DECREASED [None]
